FAERS Safety Report 9231412 (Version 3)
Quarter: 2016Q2

REPORT INFORMATION
  Report Type: Spontaneous
  Country: US (occurrence: US)
  Receive Date: 20130415
  Receipt Date: 20160426
  Transmission Date: 20160815
  Serious: Yes (Hospitalization, Other)
  Sender: FDA-Public Use
  Company Number: US-009507513-1304USA003222

PATIENT
  Sex: Female
  Weight: 68.27 kg

DRUGS (4)
  1. FOSAMAX [Suspect]
     Active Substance: ALENDRONATE SODIUM
     Indication: OSTEOPOROSIS PROPHYLAXIS
     Dosage: 70 MG, QW
     Route: 048
     Dates: start: 20070303, end: 201209
  2. FOSAMAX PLUS D [Suspect]
     Active Substance: ALENDRONATE SODIUM\CHOLECALCIFEROL
     Indication: OSTEOPOROSIS
     Dosage: 70MG/28000IU, ONE BY MOUTH WEEKLY
     Route: 048
     Dates: start: 20070627, end: 20081202
  3. FOSAMAX [Suspect]
     Active Substance: ALENDRONATE SODIUM
     Indication: OSTEOPOROSIS
     Dosage: UNK
     Route: 048
     Dates: start: 1995
  4. ALENDRONATE SODIUM. [Suspect]
     Active Substance: ALENDRONATE SODIUM
     Indication: OSTEOPOROSIS
     Dosage: 70 MG, UNK
     Route: 048
     Dates: start: 200901, end: 201301

REACTIONS (15)
  - Hyperparathyroidism [Unknown]
  - Upper limb fracture [Recovered/Resolved]
  - Osteopenia [Unknown]
  - Ulna fracture [Unknown]
  - Vitamin D deficiency [Unknown]
  - Essential hypertension [Unknown]
  - Stress urinary incontinence [Unknown]
  - Musculoskeletal disorder [Unknown]
  - Femur fracture [Unknown]
  - Blood cholesterol increased [Unknown]
  - Asthma [Unknown]
  - Medical device pain [Unknown]
  - Fall [Unknown]
  - Osteoporosis [Unknown]
  - Medical device removal [Unknown]

NARRATIVE: CASE EVENT DATE: 2000
